FAERS Safety Report 9183822 (Version 1)
Quarter: 2012Q4

REPORT INFORMATION
  Report Type: 
  Country: US (occurrence: US)
  Receive Date: 20121030
  Receipt Date: 20121030
  Transmission Date: 20130627
  Serious: Yes (Death, Other)
  Sender: FDA-Public Use
  Company Number: US-ROXANE LABORATORIES, INC.-2012-RO-02187RO

PATIENT
  Age: 59 Year
  Sex: Female

DRUGS (4)
  1. OXCARBAZEPINE [Suspect]
     Route: 048
  2. LORAZEPAM [Suspect]
     Indication: CONVULSION
  3. PHENYTOIN [Suspect]
     Indication: CONVULSION
  4. PROPOFOL [Suspect]
     Indication: CONVULSION

REACTIONS (4)
  - Completed suicide [Fatal]
  - Cardiac arrest [Fatal]
  - Convulsion [Unknown]
  - Aspiration [Unknown]
